FAERS Safety Report 4286761-3 (Version None)
Quarter: 2004Q1

REPORT INFORMATION
  Report Type: 
  Country: None (occurrence: None)
  Receive Date: 20040206
  Receipt Date: 20030910
  Transmission Date: 20041129
  Serious: Yes (Hospitalization)
  Sender: FDA-Public Use
  Company Number: DE-GLAXOSMITHKLINE-D0041890A

PATIENT
  Age: 50 Year
  Sex: Female
  Weight: 80 kg

DRUGS (3)
  1. QUILONUM RETARD [Suspect]
     Dosage: 2TAB SINGLE DOSE
     Route: 048
  2. AMITRIPTYLIN [Suspect]
     Dosage: 5TAB SINGLE DOSE
     Route: 048
  3. ASS RATIOPHARM [Suspect]
     Dosage: 20TAB SINGLE DOSE
     Route: 048

REACTIONS (2)
  - FATIGUE [None]
  - SUICIDE ATTEMPT [None]
